FAERS Safety Report 5013876-4 (Version None)
Quarter: 2006Q2

REPORT INFORMATION
  Report Type: 
  Country: None (occurrence: None)
  Receive Date: 20060525
  Receipt Date: 20060511
  Transmission Date: 20061013
  Serious: Yes (Hospitalization)
  Sender: FDA-Public Use
  Company Number: AU200605003464

PATIENT
  Sex: Male

DRUGS (3)
  1. ALITIMA                (PEMETREXED) [Suspect]
     Indication: MESOTHELIOMA
  2. CISPLATIN [Concomitant]
  3. DEXAMETHASONE [Concomitant]

REACTIONS (3)
  - BRONCHOSPASM [None]
  - DYSPNOEA [None]
  - OXYGEN SATURATION ABNORMAL [None]
